FAERS Safety Report 25945291 (Version 3)
Quarter: 2025Q4

REPORT INFORMATION
  Report Type: Report from Study
  Country: CL (occurrence: CL)
  Receive Date: 20251021
  Receipt Date: 20251128
  Transmission Date: 20260117
  Serious: Yes (Hospitalization)
  Sender: ELI LILLY AND COMPANY
  Company Number: CL-Merck Healthcare KGaA-2025051538

PATIENT
  Age: 57 Year
  Sex: Female

DRUGS (2)
  1. CETUXIMAB [Suspect]
     Active Substance: CETUXIMAB
     Indication: Colorectal cancer
     Dosage: UNK UNK, 2/M (EVERY 14 DAYS)
     Route: 042
     Dates: start: 20210607, end: 20220714
  2. CETUXIMAB [Suspect]
     Active Substance: CETUXIMAB
     Dosage: UNK UNK, 2/M (EVERY 14 DAYS)
     Route: 042
     Dates: start: 20250422

REACTIONS (3)
  - Pyelonephritis [Recovering/Resolving]
  - Dehydration [Not Recovered/Not Resolved]
  - Off label use [Unknown]

NARRATIVE: CASE EVENT DATE: 20250924
